FAERS Safety Report 19056279 (Version 1)
Quarter: 2021Q1

REPORT INFORMATION
  Report Type: Spontaneous
  Country: AR (occurrence: AR)
  Receive Date: 20210325
  Receipt Date: 20210325
  Transmission Date: 20210420
  Serious: Yes (Other)
  Sender: FDA-Public Use
  Company Number: AR-PFIZER INC-2021273780

PATIENT
  Age: 75 Year
  Sex: Female

DRUGS (1)
  1. IBRANCE [Suspect]
     Active Substance: PALBOCICLIB
     Indication: BREAST CANCER METASTATIC
     Dosage: 125 MG, TOOK 15 DAYS AND RESTED 15 DAYS
     Dates: start: 20210128

REACTIONS (9)
  - Blood test abnormal [Unknown]
  - Agitation [Unknown]
  - Hypertension [Unknown]
  - Pulmonary oedema [Unknown]
  - Axillary pain [Unknown]
  - Gastrointestinal infection [Unknown]
  - Decreased appetite [Unknown]
  - Breast pain [Unknown]
  - Malaise [Unknown]

NARRATIVE: CASE EVENT DATE: 20210308
